FAERS Safety Report 24664915 (Version 1)
Quarter: 2024Q4

REPORT INFORMATION
  Report Type: Spontaneous
  Country: NL (occurrence: NL)
  Receive Date: 20241126
  Receipt Date: 20241126
  Transmission Date: 20250115
  Serious: Yes (Hospitalization, Other)
  Sender: HIKMA
  Company Number: NL-HIKMA PHARMACEUTICALS USA INC.-NL-H14001-24-10800

PATIENT
  Age: 67 Year
  Sex: Male
  Weight: 107 kg

DRUGS (3)
  1. ACYCLOVIR [Suspect]
     Active Substance: ACYCLOVIR
     Dosage: 1100 MILLIGRAM, QD
     Route: 065
  2. ACYCLOVIR [Suspect]
     Active Substance: ACYCLOVIR
     Indication: Encephalitis herpes
     Dosage: 850 MILLIGRAM, QD
     Route: 065
     Dates: start: 20241017, end: 20241020
  3. IOBITRIDOL [Suspect]
     Active Substance: IOBITRIDOL
     Indication: Imaging procedure
     Dosage: 100 MILLILITERS
     Route: 065
     Dates: start: 20241017

REACTIONS (5)
  - Acute kidney injury [Recovered/Resolved]
  - Somnolence [Recovered/Resolved]
  - Confusional state [Recovered/Resolved]
  - Speech disorder [Recovered/Resolved]
  - Pyrexia [Unknown]
